FAERS Safety Report 21946975 (Version 2)
Quarter: 2023Q1

REPORT INFORMATION
  Report Type: Spontaneous
  Country: CA (occurrence: CA)
  Receive Date: 20230202
  Receipt Date: 20230216
  Transmission Date: 20230418
  Serious: Yes (Other)
  Sender: FDA-Public Use
  Company Number: CA-PFIZER INC-202201368869

PATIENT
  Age: 51 Year
  Sex: Male
  Weight: 85 kg

DRUGS (7)
  1. RUXIENCE [Suspect]
     Active Substance: RITUXIMAB-PVVR
     Indication: Glomerulonephritis membranous
     Dosage: 1000 MG DAY 1 AND DAY 15(FIRST INFUSION), Q 2 WEEKS FOR 2 DOSES
     Route: 042
     Dates: start: 20230126
  2. RUXIENCE [Suspect]
     Active Substance: RITUXIMAB-PVVR
     Dosage: 1000 MG, EVERY 2 WEEKS
     Dates: start: 20230209
  3. ACETAMINOPHEN [Concomitant]
     Active Substance: ACETAMINOPHEN
     Indication: Premedication
     Dosage: 650 MG
     Route: 048
     Dates: start: 20230126, end: 20230126
  4. ACETAMINOPHEN [Concomitant]
     Active Substance: ACETAMINOPHEN
     Dosage: UNK
     Dates: start: 20230209
  5. DIPHENHYDRAMINE [Concomitant]
     Active Substance: DIPHENHYDRAMINE
     Indication: Premedication
     Dosage: 50 MG
     Route: 048
     Dates: start: 20230126, end: 20230126
  6. DIPHENHYDRAMINE [Concomitant]
     Active Substance: DIPHENHYDRAMINE
     Dosage: UNK
     Dates: start: 20230209
  7. HYDROCORTISONE [Concomitant]
     Active Substance: HYDROCORTISONE
     Dosage: UNK
     Dates: start: 20230209

REACTIONS (10)
  - Throat irritation [Recovering/Resolving]
  - Feeling hot [Recovering/Resolving]
  - Hyperhidrosis [Recovering/Resolving]
  - Abdominal discomfort [Recovering/Resolving]
  - Tremor [Recovering/Resolving]
  - Off label use [Unknown]
  - Product use issue [Unknown]
  - Off label use [Unknown]
  - Hypertension [Unknown]
  - Heart rate irregular [Recovered/Resolved]

NARRATIVE: CASE EVENT DATE: 20230126
